FAERS Safety Report 4913489-6 (Version None)
Quarter: 2006Q1

REPORT INFORMATION
  Report Type: 
  Country: None (occurrence: None)
  Receive Date: 20060216
  Receipt Date: 20060213
  Transmission Date: 20060701
  Serious: Yes (Death)
  Sender: FDA-Public Use
  Company Number: JP-SANOFI-SYNTHELABO-F01200600396

PATIENT
  Sex: Male
  Weight: 45 kg

DRUGS (3)
  1. OXALIPLATIN [Suspect]
     Indication: COLON CANCER
     Route: 042
     Dates: start: 20051122, end: 20051122
  2. FLUOROURACIL [Suspect]
     Route: 041
     Dates: start: 20051122, end: 20051122
  3. CALCIUM LEVOFOLINATE [Suspect]
     Route: 042
     Dates: start: 20051122, end: 20051122

REACTIONS (1)
  - CARDIAC ARREST [None]
